FAERS Safety Report 8272197-7 (Version None)
Quarter: 2012Q2

REPORT INFORMATION
  Report Type: 
  Country: None (occurrence: None)
  Receive Date: 20120410
  Receipt Date: 20120404
  Transmission Date: 20120825
  Serious: Yes (Life-Threatening, Hospitalization)
  Sender: FDA-Public Use
  Company Number: CA-CELGENEUS-028-C5013-12021231

PATIENT
  Sex: Male
  Weight: 67.6 kg

DRUGS (16)
  1. FRAGMIN [Concomitant]
  2. CEFTAZIDIME [Concomitant]
     Route: 065
     Dates: start: 20120202, end: 20120303
  3. LENALIDOMIDE [Suspect]
     Route: 048
     Dates: start: 20120104, end: 20120131
  4. ALLOPURINOL [Concomitant]
     Indication: PROPHYLAXIS
     Dosage: 300 MILLIGRAM
     Route: 048
     Dates: start: 20110218
  5. GENTAMICIN [Concomitant]
     Route: 065
     Dates: start: 20120202, end: 20120303
  6. VASOPRESSORS [Concomitant]
     Indication: SEPTIC SHOCK
     Route: 065
     Dates: start: 20120202
  7. RED BLOOD CELLS [Concomitant]
     Dosage: 4 UNITS
     Route: 065
     Dates: start: 20120204, end: 20120205
  8. PLATELETS [Concomitant]
     Dosage: 3 UNITS
     Route: 065
     Dates: start: 20120203, end: 20120205
  9. IMMUNE GLOBULIN INTRAVENOUS (HUMAN) [Concomitant]
     Indication: INFECTION
     Dosage: 30 GRAM
     Route: 041
     Dates: start: 20120206, end: 20120206
  10. FRAGMIN [Concomitant]
     Indication: PROPHYLAXIS
     Dosage: 2500 IU (INTERNATIONAL UNIT)
     Route: 058
     Dates: start: 20120101
  11. NEUPOGEN [Concomitant]
     Indication: NEUTROPENIA
     Dosage: 300 MICROGRAM
     Route: 058
     Dates: start: 20110611
  12. METRONIDAZOLE [Concomitant]
     Dosage: 500 MILLIGRAM
     Route: 048
     Dates: start: 20120204, end: 20120214
  13. VANCOMYCIN [Concomitant]
     Route: 065
     Dates: start: 20120202, end: 20120202
  14. LENALIDOMIDE [Suspect]
     Route: 048
     Dates: start: 20110222
  15. FRESH FROZEN PLASMA [Concomitant]
     Indication: HYPOTENSION
     Dosage: 8 UNITS
     Route: 065
     Dates: start: 20120203, end: 20120204
  16. NEUPOGEN [Concomitant]
     Indication: NERVE STIMULATION TEST
     Route: 065
     Dates: start: 20120203, end: 20120302

REACTIONS (5)
  - ANAEMIA [None]
  - THROMBOCYTOPENIA [None]
  - CLOSTRIDIUM DIFFICILE COLITIS [None]
  - ESCHERICHIA BACTERAEMIA [None]
  - SEPTIC SHOCK [None]
